FAERS Safety Report 11240650 (Version 1)
Quarter: 2015Q3

REPORT INFORMATION
  Report Type: Spontaneous
  Country: US (occurrence: US)
  Receive Date: 20150706
  Receipt Date: 20150706
  Transmission Date: 20151125
  Serious: No
  Sender: FDA-Public Use
  Company Number: US-ASTRAZENECA-2015SE64945

PATIENT
  Age: 77 Year
  Sex: Male
  Weight: 74 kg

DRUGS (1)
  1. NEXIUM 24HR [Suspect]
     Active Substance: ESOMEPRAZOLE MAGNESIUM
     Indication: GASTROOESOPHAGEAL REFLUX DISEASE
     Route: 048
     Dates: start: 20150618

REACTIONS (3)
  - Somnolence [Unknown]
  - Wrong technique in product usage process [Unknown]
  - Lethargy [Unknown]

NARRATIVE: CASE EVENT DATE: 201506
